FAERS Safety Report 24581002 (Version 1)
Quarter: 2024Q4

REPORT INFORMATION
  Report Type: Spontaneous
  Country: US (occurrence: US)
  Receive Date: 20241105
  Receipt Date: 20241105
  Transmission Date: 20250114
  Serious: No
  Sender: GUERBET
  Company Number: US-GUERBET / LLC-US-20240127

PATIENT
  Age: 73 Year
  Sex: Female

DRUGS (1)
  1. DOTAREM [Suspect]
     Active Substance: GADOTERATE MEGLUMINE
     Indication: Magnetic resonance imaging
     Dates: start: 20240806, end: 20240806

REACTIONS (3)
  - Pruritus [Unknown]
  - Erythema [Unknown]
  - Flushing [Unknown]

NARRATIVE: CASE EVENT DATE: 20240806
